FAERS Safety Report 4309368-8 (Version None)
Quarter: 2004Q1

REPORT INFORMATION
  Report Type: 
  Country: None (occurrence: None)
  Receive Date: 20040302
  Receipt Date: 20040220
  Transmission Date: 20041129
  Serious: Yes (Hospitalization)
  Sender: FDA-Public Use
  Company Number: CH-BRISTOL-MYERS SQUIBB COMPANY-12512968

PATIENT
  Age: 63 Year
  Sex: Female
  Weight: 85 kg

DRUGS (3)
  1. METHOTREXATE [Suspect]
     Indication: DERMATOMYOSITIS
     Route: 058
     Dates: start: 20031221, end: 20031228
  2. REMICADE [Suspect]
     Indication: DERMATOMYOSITIS
     Route: 042
     Dates: start: 20031230, end: 20040108
  3. PREDNISONE [Suspect]
     Indication: DERMATOMYOSITIS
     Dosage: 30-50 MG
     Route: 048
     Dates: start: 20031103

REACTIONS (1)
  - PNEUMOCYSTIS CARINII INFECTION [None]
